FAERS Safety Report 17134027 (Version 1)
Quarter: 2019Q4

REPORT INFORMATION
  Report Type: Spontaneous
  Country: NL (occurrence: NL)
  Receive Date: 20191210
  Receipt Date: 20191210
  Transmission Date: 20200122
  Serious: Yes (Life-Threatening, Hospitalization)
  Sender: FDA-Public Use
  Company Number: NL-ACCORD-164336

PATIENT
  Age: 56 Year
  Sex: Female
  Weight: 70 kg

DRUGS (7)
  1. TRACYDAL [Interacting]
     Active Substance: TRANYLCYPROMINE SULFATE
     Indication: DEPRESSION
     Dosage: 60 MG, STRENGTH : 20 MG, THIS IS PROBABLY NOT A SIDE EFFECT, BUT ....
     Dates: start: 20190926, end: 20191104
  2. LEVOTHYROXINE. [Concomitant]
     Active Substance: LEVOTHYROXINE
     Dosage: 1 DD 100 MICROG
  3. QUETIAPINE. [Interacting]
     Active Substance: QUETIAPINE
     Indication: DEPRESSION
     Dosage: 100 MG, STRENGTH: 50 MG, TABLET WITH CONTROLLED RELEASE
     Dates: start: 2016
  4. PRIADEL [Interacting]
     Active Substance: LITHIUM
     Indication: DEPRESSION
     Dosage: 800 MG, STRENGTH: 400 MG,  TABLET WITH CONTROLLED RELEASE
     Dates: start: 2018
  5. BECLOMETASONE [Concomitant]
     Active Substance: BECLOMETHASONE DIPROPIONATE
  6. COLECALCIFEROL [Concomitant]
     Active Substance: CHOLECALCIFEROL
  7. QUETIAPINE. [Suspect]
     Active Substance: QUETIAPINE
     Indication: DEPRESSION
     Dosage: 250 MG, STRENGTH: 200 MG
     Dates: start: 2016

REACTIONS (3)
  - Confusional state [Recovered/Resolved]
  - Drug interaction [Unknown]
  - Aphasia [Recovered/Resolved]

NARRATIVE: CASE EVENT DATE: 20190927
